FAERS Safety Report 7995170-2 (Version None)
Quarter: 2011Q4

REPORT INFORMATION
  Report Type: 
  Country: None (occurrence: None)
  Receive Date: 20111220
  Receipt Date: 20111212
  Transmission Date: 20120403
  Serious: Yes (Other)
  Sender: FDA-Public Use
  Company Number: JP-GLAXOSMITHKLINE-B0769607A

PATIENT
  Sex: Male

DRUGS (7)
  1. TEGRETOL [Concomitant]
     Route: 048
  2. LAMICTAL [Suspect]
     Indication: EPILEPSY
     Dosage: 100MG TWICE PER DAY
     Route: 048
     Dates: start: 20110822, end: 20111201
  3. RISPERIDONE [Concomitant]
     Route: 065
  4. PHENOBARBITAL TAB [Concomitant]
     Route: 048
  5. MYONAL [Concomitant]
     Route: 048
  6. PRIMIDONE [Concomitant]
     Route: 048
  7. DISOPAIN [Concomitant]
     Route: 048

REACTIONS (2)
  - AGGRESSION [None]
  - IRRITABILITY [None]
